FAERS Safety Report 5076488-2 (Version None)
Quarter: 2006Q3

REPORT INFORMATION
  Report Type: 
  Country: None (occurrence: None)
  Receive Date: 20060810
  Receipt Date: 20060209
  Transmission Date: 20061208
  Serious: Yes (Hospitalization)
  Sender: FDA-Public Use
  Company Number: GB-BRISTOL-MYERS SQUIBB COMPANY-13278478

PATIENT
  Age: 61 Year
  Sex: Female

DRUGS (10)
  1. ERBITUX [Suspect]
     Indication: NON-SMALL CELL LUNG CANCER
     Route: 041
     Dates: start: 20051228
  2. CISPLATIN [Suspect]
     Indication: NON-SMALL CELL LUNG CANCER
     Route: 042
     Dates: start: 20051228
  3. VINORELBINE [Suspect]
     Indication: NON-SMALL CELL LUNG CANCER
     Route: 042
     Dates: start: 20051228
  4. MAGNESIUM CHLORIDE [Concomitant]
  5. POTASSIUM CHLORIDE [Concomitant]
  6. GRANISETRON  HCL [Concomitant]
  7. DOMPERIDONE [Concomitant]
  8. TRAMADOL HCL [Concomitant]
  9. CYCLIZINE [Concomitant]
  10. VENTOLIN [Concomitant]

REACTIONS (4)
  - DEHYDRATION [None]
  - MALIGNANT NEOPLASM PROGRESSION [None]
  - NAUSEA [None]
  - PAIN [None]
